FAERS Safety Report 9782952 (Version 2)
Quarter: 2014Q1

REPORT INFORMATION
  Report Type: Spontaneous
  Country: US (occurrence: US)
  Receive Date: 20131226
  Receipt Date: 20140211
  Transmission Date: 20141002
  Serious: Yes (Hospitalization)
  Sender: FDA-Public Use
  Company Number: US-INCYTE CORPORATION-2013IN003053

PATIENT
  Age: 73 Year
  Sex: Male

DRUGS (2)
  1. JAKAFI [Suspect]
     Indication: MYELOFIBROSIS
     Dosage: 20 MG, BID
     Route: 048
  2. JAKAFI [Suspect]
     Dosage: 10 MG, BID
     Route: 048
     Dates: start: 20131112, end: 20131220

REACTIONS (5)
  - Pneumonia [Unknown]
  - Pulmonary haemorrhage [Unknown]
  - Chest pain [Unknown]
  - Anaemia [Unknown]
  - Platelet count decreased [Unknown]
